FAERS Safety Report 8302774-6 (Version None)
Quarter: 2012Q2

REPORT INFORMATION
  Report Type: 
  Country: None (occurrence: None)
  Receive Date: 20120420
  Receipt Date: 20110926
  Transmission Date: 20120825
  Serious: No
  Sender: FDA-Public Use
  Company Number: US-PFIZER INC-K201101125

PATIENT
  Sex: Male
  Weight: 97.506 kg

DRUGS (2)
  1. AVINZA [Suspect]
     Indication: INTERVERTEBRAL DISC PROTRUSION
     Dosage: 150 MG, 1X/DAY
     Route: 048
     Dates: start: 20080101
  2. EFFEXOR [Concomitant]
     Dosage: UNK

REACTIONS (1)
  - MEDICATION RESIDUE [None]
